FAERS Safety Report 7646560-9 (Version None)
Quarter: 2011Q3

REPORT INFORMATION
  Report Type: 
  Country: None (occurrence: None)
  Receive Date: 20110725
  Receipt Date: 20110707
  Transmission Date: 20111222
  Serious: Yes (Other)
  Sender: FDA-Public Use
  Company Number: JHP201100348

PATIENT
  Age: 50 Year
  Sex: Male

DRUGS (17)
  1. DEXTROSE 5% [Concomitant]
  2. ISOFLURANE [Concomitant]
  3. DOPAMINE HCL [Concomitant]
  4. LASIX [Concomitant]
  5. VECURONIIUM (VECURONIUM) [Concomitant]
  6. NEOSTIGMINE (NEOSTIGMINE METILSULFATE) [Concomitant]
  7. EPHEDRINE (EPHEDRINE HYDROCHLORIDE) [Concomitant]
  8. BICARBONATE (SODIUM BICARBONATE) [Concomitant]
  9. INSULIN [Concomitant]
  10. DANTROLENE SODIUM [Suspect]
     Indication: HYPERTHERMIA MALIGNANT
     Dosage: 300 MG, TOTAL, INTRAVENOUS
     Route: 042
  11. GLYCOPYRROLATE [Concomitant]
  12. PENTOBARBITAL CAP [Concomitant]
  13. ATIVAN (LORAZAPEM) [Concomitant]
  14. FENTANYL [Concomitant]
  15. MANNITOL [Concomitant]
  16. THIOPENTAL (THIOPENTAL SODIUM) [Concomitant]
  17. LEVOPHED (NOREPINEPHRINE BITRATE) [Concomitant]

REACTIONS (1)
  - CARDIAC OUTPUT DECREASED [None]
